FAERS Safety Report 8025564-0 (Version None)
Quarter: 2012Q1

REPORT INFORMATION
  Report Type: 
  Country: None (occurrence: None)
  Receive Date: 20120105
  Receipt Date: 20111230
  Transmission Date: 20120608
  Serious: Yes (Hospitalization)
  Sender: FDA-Public Use
  Company Number: US-ABBOTT-12P-163-0888378-00

PATIENT
  Sex: Male
  Weight: 90.8 kg

DRUGS (9)
  1. LISINOPRIL [Concomitant]
     Indication: HYPERTENSION
  2. TRILIPIX [Concomitant]
     Indication: BLOOD TRIGLYCERIDES INCREASED
  3. HUMIRA [Suspect]
     Indication: CROHN'S DISEASE
     Dates: start: 20111101
  4. ASPIRIN [Concomitant]
     Indication: CARDIAC DISORDER
  5. VITAMIN B-12 [Concomitant]
     Indication: VITAMIN B12 DEFICIENCY
  6. METOPROLOL [Concomitant]
     Indication: HEART RATE IRREGULAR
  7. PENTASA [Concomitant]
     Indication: CROHN'S DISEASE
  8. COLESTIDE [Concomitant]
     Indication: CROHN'S DISEASE
  9. MULTI-VITAMIN [Concomitant]
     Indication: PRODUCT USED FOR UNKNOWN INDICATION

REACTIONS (6)
  - SKIN FISSURES [None]
  - FACIAL PAIN [None]
  - PAPULE [None]
  - STAPHYLOCOCCAL INFECTION [None]
  - DYSPHAGIA [None]
  - ERYTHEMA [None]
